FAERS Safety Report 10340637 (Version 1)
Quarter: 2014Q3

REPORT INFORMATION
  Report Type: Spontaneous
  Country: CN (occurrence: CN)
  Receive Date: 20140724
  Receipt Date: 20140724
  Transmission Date: 20150326
  Serious: Yes (Hospitalization)
  Sender: FDA-Public Use
  Company Number: CN-ELI_LILLY_AND_COMPANY-CN201407006384

PATIENT
  Age: 3 Year
  Sex: Male
  Weight: 16.5 kg

DRUGS (2)
  1. CEFTAZIDIME. [Suspect]
     Active Substance: CEFTAZIDIME
     Indication: BRONCHITIS
     Dosage: 0.5 G, BID
     Route: 042
     Dates: start: 20131218, end: 20131218
  2. CECLOR [Suspect]
     Active Substance: CEFACLOR
     Indication: BRONCHITIS
     Dosage: 0.6 DF, QD
     Route: 048
     Dates: start: 20131217, end: 20131218

REACTIONS (2)
  - Rash erythematous [Recovered/Resolved]
  - Pruritus [Recovered/Resolved]

NARRATIVE: CASE EVENT DATE: 20131218
